FAERS Safety Report 15894170 (Version 1)
Quarter: 2019Q1

REPORT INFORMATION
  Report Type: Report from Study
  Country: US (occurrence: US)
  Receive Date: 20190131
  Receipt Date: 20190131
  Transmission Date: 20190417
  Serious: Yes (Hospitalization, Other)
  Sender: FDA-Public Use
  Company Number: US-SAKK-2018SA300488AA

PATIENT
  Age: 83 Year
  Sex: Female

DRUGS (1)
  1. INSULIN GLARGINE [Suspect]
     Active Substance: INSULIN GLARGINE
     Indication: TYPE 2 DIABETES MELLITUS
     Dosage: 16 U, HS
     Route: 058

REACTIONS (13)
  - Limb discomfort [Not Recovered/Not Resolved]
  - Gait disturbance [Recovered/Resolved]
  - Asthenia [Recovered/Resolved]
  - Musculoskeletal pain [Unknown]
  - Cerebrovascular accident [Recovered/Resolved]
  - Speech disorder [Not Recovered/Not Resolved]
  - Back pain [Unknown]
  - Thyroid disorder [Unknown]
  - Memory impairment [Not Recovered/Not Resolved]
  - Dysgraphia [Not Recovered/Not Resolved]
  - Blood pressure abnormal [Unknown]
  - Loose body in joint [Not Recovered/Not Resolved]
  - Thrombosis [Recovered/Resolved]
